FAERS Safety Report 16623713 (Version 2)
Quarter: 2019Q3

REPORT INFORMATION
  Report Type: Spontaneous
  Country: US (occurrence: US)
  Receive Date: 20190724
  Receipt Date: 20190814
  Transmission Date: 20191004
  Serious: Yes (Hospitalization)
  Sender: FDA-Public Use
  Company Number: US-BEH-2019104614

PATIENT
  Age: 37 Year
  Sex: Female

DRUGS (2)
  1. HUMATE-P [Suspect]
     Active Substance: HUMAN COAGULATION FACTOR VIII/VON WILLEBRAND FACTOR COMPLEX
     Indication: VON WILLEBRAND^S DISEASE
     Dosage: 3600 INTERNATIONAL UNIT, QD
     Route: 042
     Dates: start: 20190708
  2. HUMATE-P [Suspect]
     Active Substance: HUMAN COAGULATION FACTOR VIII/VON WILLEBRAND FACTOR COMPLEX
     Indication: VON WILLEBRAND^S DISEASE
     Dosage: 3600 INTERNATIONAL UNIT, QD
     Route: 042
     Dates: start: 20190708

REACTIONS (2)
  - Drug ineffective [Not Recovered/Not Resolved]
  - Vaginal cuff dehiscence [Unknown]

NARRATIVE: CASE EVENT DATE: 20190708
